FAERS Safety Report 19924449 (Version 1)
Quarter: 2021Q4

REPORT INFORMATION
  Report Type: Spontaneous
  Country: FR (occurrence: FR)
  Receive Date: 20211006
  Receipt Date: 20211006
  Transmission Date: 20220303
  Serious: Yes (Hospitalization)
  Sender: FDA-Public Use
  Company Number: FR-ABBVIE-21K-056-4106741-00

PATIENT
  Age: 56 Year
  Sex: Female
  Weight: 50 kg

DRUGS (6)
  1. DEPAKOTE [Suspect]
     Active Substance: DIVALPROEX SODIUM
     Indication: Epilepsy
     Route: 048
     Dates: start: 20180911, end: 20180915
  2. OXAZEPAM [Suspect]
     Active Substance: OXAZEPAM
     Indication: Anxiety
     Route: 048
     Dates: start: 20180904, end: 20180915
  3. LYSODREN [Suspect]
     Active Substance: MITOTANE
     Indication: Cushing^s syndrome
     Route: 048
     Dates: start: 2012, end: 20180914
  4. HYDROCORTISONE [Concomitant]
     Active Substance: HYDROCORTISONE
     Indication: Product used for unknown indication
  5. METOPIRONE [Concomitant]
     Active Substance: METYRAPONE
     Indication: Product used for unknown indication
     Dates: start: 2012
  6. VENLAFAXINE [Concomitant]
     Active Substance: VENLAFAXINE HYDROCHLORIDE
     Indication: Product used for unknown indication
     Dates: start: 2018

REACTIONS (4)
  - Hyperammonaemic encephalopathy [Recovered/Resolved]
  - Sedation complication [Recovered/Resolved]
  - Somnolence [Recovered/Resolved]
  - Disturbance in attention [Recovered/Resolved]

NARRATIVE: CASE EVENT DATE: 20180901
